FAERS Safety Report 24588571 (Version 5)
Quarter: 2025Q1

REPORT INFORMATION
  Report Type: Spontaneous
  Country: US (occurrence: US)
  Receive Date: 20241107
  Receipt Date: 20250318
  Transmission Date: 20250409
  Serious: Yes (Hospitalization, Other)
  Sender: AMGEN
  Company Number: US-AMGEN-USASP2024219518

PATIENT
  Age: 48 Year
  Sex: Male
  Weight: 75.1 kg

DRUGS (6)
  1. OTEZLA [Suspect]
     Active Substance: APREMILAST
     Indication: Psoriasis
     Route: 048
     Dates: start: 20240828
  2. OTEZLA [Suspect]
     Active Substance: APREMILAST
     Dosage: 30 MILLIGRAM, BID
     Route: 048
     Dates: end: 20241101
  3. CYCLOBENZAPRINE [Concomitant]
     Active Substance: CYCLOBENZAPRINE
     Indication: Back pain
     Dosage: 10 MILLIGRAM, QD (AT BED TIME, PRN)
     Route: 065
     Dates: start: 20240924
  4. DICLOFENAC [Concomitant]
     Active Substance: DICLOFENAC
     Indication: Arthralgia
     Dosage: 75 MILLIGRAM, DR TABLET
     Route: 048
     Dates: start: 20240920, end: 20241101
  5. METHIMAZOLE [Concomitant]
     Active Substance: METHIMAZOLE
     Route: 065
  6. ROFLUMILAST [Concomitant]
     Active Substance: ROFLUMILAST
     Indication: Psoriasis
     Dosage: UNK UNK, QD
     Route: 065
     Dates: start: 20240925, end: 20241101

REACTIONS (11)
  - Post-acute COVID-19 syndrome [Not Recovered/Not Resolved]
  - Hyperthyroidism [Unknown]
  - Cat scratch disease [Unknown]
  - Liver injury [Recovered/Resolved]
  - Pruritus [Not Recovered/Not Resolved]
  - Weight decreased [Not Recovered/Not Resolved]
  - Asthenia [Not Recovered/Not Resolved]
  - Grip strength decreased [Not Recovered/Not Resolved]
  - Speech disorder [Not Recovered/Not Resolved]
  - Mobility decreased [Not Recovered/Not Resolved]
  - Muscular weakness [Recovered/Resolved with Sequelae]

NARRATIVE: CASE EVENT DATE: 20240101
